FAERS Safety Report 7639317-6 (Version None)
Quarter: 2011Q3

REPORT INFORMATION
  Report Type: 
  Country: None (occurrence: None)
  Receive Date: 20110727
  Receipt Date: 20110725
  Transmission Date: 20111222
  Serious: Yes (Death)
  Sender: FDA-Public Use
  Company Number: PHHY2011MY62127

PATIENT
  Sex: Female

DRUGS (1)
  1. GLEEVEC [Suspect]
     Indication: CHRONIC MYELOID LEUKAEMIA
     Dosage: UNK UKN, UNK

REACTIONS (4)
  - CHRONIC MYELOID LEUKAEMIA [None]
  - PULMONARY HAEMORRHAGE [None]
  - BLAST CRISIS IN MYELOGENOUS LEUKAEMIA [None]
  - NEUTROPENIC SEPSIS [None]
